FAERS Safety Report 18066954 (Version 1)
Quarter: 2020Q3

REPORT INFORMATION
  Report Type: Report from Study
  Country: CA (occurrence: CA)
  Receive Date: 20200724
  Receipt Date: 20200724
  Transmission Date: 20201103
  Serious: Yes (Other)
  Sender: FDA-Public Use
  Company Number: CA-JNJFOC-20200405525

PATIENT
  Age: 58 Year
  Sex: Male
  Weight: 88 kg

DRUGS (2)
  1. REMICADE [Suspect]
     Active Substance: INFLIXIMAB
     Indication: CROHN^S DISEASE
     Route: 042
  2. REMICADE [Suspect]
     Active Substance: INFLIXIMAB
     Indication: PSORIASIS
     Dosage: NEXT INFUSION ON 16TH MAY; MAY MOVE TO ONCE IN 4 WEEKS AFTER DISCUSSION WITH DERMATOLOGIST.
     Route: 042
     Dates: start: 20110119

REACTIONS (2)
  - Clostridium difficile infection [Unknown]
  - Gastrointestinal disorder [Not Recovered/Not Resolved]
